FAERS Safety Report 15091367 (Version 1)
Quarter: 2018Q2

REPORT INFORMATION
  Report Type: Spontaneous
  Country: US (occurrence: US)
  Receive Date: 20180608
  Receipt Date: 20180608
  Transmission Date: 20180711
  Serious: Yes (Hospitalization)
  Sender: FDA-Public Use
  Company Number: None

PATIENT
  Age: 52 Year
  Sex: Female

DRUGS (2)
  1. TRACLEER [Suspect]
     Active Substance: BOSENTAN
     Indication: PULMONARY ARTERIAL HYPERTENSION
     Route: 048
  2. TRACLEER [Suspect]
     Active Substance: BOSENTAN
     Indication: CONNECTIVE TISSUE DISORDER
     Route: 048

REACTIONS (8)
  - Vertigo [None]
  - Vomiting [None]
  - Pyrexia [None]
  - Platelet count decreased [None]
  - Pneumonia [None]
  - Cough [None]
  - Aspiration [None]
  - Device expulsion [None]

NARRATIVE: CASE EVENT DATE: 20180529
